FAERS Safety Report 8581679-X (Version None)
Quarter: 2012Q3

REPORT INFORMATION
  Report Type: 
  Country: None (occurrence: None)
  Receive Date: 20120801
  Receipt Date: 20120801
  Transmission Date: 20120928
  Serious: Yes (Other)
  Sender: FDA-Public Use
  Company Number: None

PATIENT
  Age: 51 Year
  Sex: Male
  Weight: 97.5234 kg

DRUGS (2)
  1. PREDNISONE [Suspect]
     Indication: COLITIS ULCERATIVE
     Dosage: 10MG STEP DOWN BI-WEEKLY DAILY PO UNKNOWN IV IV
     Route: 048
     Dates: start: 20120620, end: 20120718
  2. PREDNISONE [Suspect]
     Indication: COLITIS ULCERATIVE
     Dosage: 10MG STEP DOWN BI-WEEKLY DAILY PO UNKNOWN IV IV
     Route: 048
     Dates: start: 20120616, end: 20120618

REACTIONS (11)
  - ARTHRALGIA [None]
  - TENDON PAIN [None]
  - BACK PAIN [None]
  - DYSSTASIA [None]
  - ACNE [None]
  - AGITATION [None]
  - ANXIETY [None]
  - TENDON RUPTURE [None]
  - INSOMNIA [None]
  - AMNESIA [None]
  - MUSCULOSKELETAL PAIN [None]
